FAERS Safety Report 9168916 (Version 1)
Quarter: 2013Q1

REPORT INFORMATION
  Report Type: Spontaneous
  Country: US (occurrence: US)
  Receive Date: 20130318
  Receipt Date: 20130318
  Transmission Date: 20140127
  Serious: Yes (Hospitalization, Other)
  Sender: FDA-Public Use
  Company Number: US-ELI_LILLY_AND_COMPANY-US201302002354

PATIENT
  Sex: Female
  Weight: 117.91 kg

DRUGS (8)
  1. BYDUREON [Suspect]
     Indication: INSULIN-REQUIRING TYPE 2 DIABETES MELLITUS
     Dosage: 2 MG, WEEKLY (1/W)
     Route: 058
     Dates: start: 20121002
  2. LANTUS [Concomitant]
     Indication: INSULIN-REQUIRING TYPE 2 DIABETES MELLITUS
     Dosage: UNK
     Route: 058
  3. HUMALOG [Concomitant]
     Indication: INSULIN-REQUIRING TYPE 2 DIABETES MELLITUS
     Dosage: UNK, TID
     Route: 058
  4. ASPIRIN                                 /USA/ [Concomitant]
     Dosage: 81 MG, QD
     Route: 048
  5. ALTACE [Concomitant]
     Indication: BLOOD PRESSURE
     Dosage: 5 MG, QD
     Route: 048
  6. LIPITOR [Concomitant]
     Dosage: 10 MG, QD
     Route: 048
  7. DYAZIDE [Concomitant]
     Indication: BLOOD PRESSURE
     Dosage: UNK, QD
     Route: 048
  8. INSULIN ASPART [Concomitant]
     Indication: DIABETES MELLITUS
     Dosage: UNK, TID
     Dates: start: 20120131

REACTIONS (3)
  - Injection site abscess [Recovered/Resolved with Sequelae]
  - Injection site nodule [Unknown]
  - Off label use [Not Recovered/Not Resolved]
